FAERS Safety Report 11003508 (Version 2)
Quarter: 2015Q2

REPORT INFORMATION
  Report Type: Spontaneous
  Country: HR (occurrence: HR)
  Receive Date: 20150409
  Receipt Date: 20150507
  Transmission Date: 20150821
  Serious: Yes (Hospitalization, Other)
  Sender: FDA-Public Use
  Company Number: HR-ABBVIE-15K-216-1371221-00

PATIENT
  Age: 55 Year
  Sex: Male
  Weight: 58 kg

DRUGS (8)
  1. BRUFEN [Concomitant]
     Active Substance: IBUPROFEN
     Indication: PRODUCT USED FOR UNKNOWN INDICATION
     Dosage: 600-1200 MG PER DAY, ONE TO TWO TABLET PER DAY AS NEEDED
     Route: 048
     Dates: end: 20120113
  2. CLARITROMICINA [Concomitant]
     Active Substance: CLARITHROMYCIN
     Indication: PRODUCT USED FOR UNKNOWN INDICATION
     Dates: start: 201503, end: 201503
  3. NEOFEN [Concomitant]
     Indication: PRODUCT USED FOR UNKNOWN INDICATION
     Dosage: ONE TO TWO TABLET AS NEEDED
     Dates: start: 20120113
  4. LOSARTIC [Concomitant]
     Active Substance: LOSARTAN POTASSIUM
     Indication: PRODUCT USED FOR UNKNOWN INDICATION
     Dosage: ONE TABLET
     Route: 048
  5. ACTONEL [Concomitant]
     Active Substance: RISEDRONATE SODIUM
     Indication: PRODUCT USED FOR UNKNOWN INDICATION
     Route: 048
  6. HUMIRA [Suspect]
     Active Substance: ADALIMUMAB
     Indication: ANKYLOSING SPONDYLITIS
     Route: 058
     Dates: start: 20110427, end: 20150212
  7. ZALDIAR [Concomitant]
     Active Substance: ACETAMINOPHEN\TRAMADOL HYDROCHLORIDE
     Indication: PRODUCT USED FOR UNKNOWN INDICATION
     Dosage: ONE TO TWO TABLET
     Route: 048
     Dates: end: 20120113
  8. FOSAMAX T [Concomitant]
     Indication: PRODUCT USED FOR UNKNOWN INDICATION
     Dates: start: 20110427, end: 20110720

REACTIONS (32)
  - Chest pain [Unknown]
  - Lacrimation increased [Unknown]
  - Chills [Unknown]
  - Urine abnormality [Unknown]
  - Lymphocyte count decreased [Unknown]
  - Pleural effusion [Unknown]
  - Weight decreased [Unknown]
  - Painful respiration [Unknown]
  - Haemangioma of liver [Unknown]
  - Malignant melanoma [Recovered/Resolved]
  - Arthralgia [Unknown]
  - Blood fibrinogen increased [Unknown]
  - Influenza [Recovered/Resolved]
  - Feeling hot [Unknown]
  - Neutrophil count increased [Unknown]
  - Autoimmune disorder [Unknown]
  - Feeling hot [Unknown]
  - Systemic lupus erythematosus [Unknown]
  - Red blood cell sedimentation rate increased [Unknown]
  - Haematochezia [Recovered/Resolved]
  - Hyperhidrosis [Unknown]
  - Pyrexia [Unknown]
  - Muscle tightness [Unknown]
  - Inguinal hernia [Unknown]
  - Infantile haemangioma [Unknown]
  - Lupus-like syndrome [Unknown]
  - Cough [Unknown]
  - Spinal pain [Unknown]
  - Musculoskeletal chest pain [Unknown]
  - Musculoskeletal stiffness [Unknown]
  - Joint swelling [Unknown]
  - C-reactive protein increased [Unknown]

NARRATIVE: CASE EVENT DATE: 2011
